FAERS Safety Report 5402640-X (Version None)
Quarter: 2007Q3

REPORT INFORMATION
  Report Type: 
  Country: None (occurrence: None)
  Receive Date: 20070801
  Receipt Date: 20070727
  Transmission Date: 20080115
  Serious: Yes (Death, Other)
  Sender: FDA-Public Use
  Company Number: US-BRISTOL-MYERS SQUIBB COMPANY-13860341

PATIENT
  Age: 16 Year
  Sex: Male

DRUGS (3)
  1. VINCRISTINE SULFATE [Suspect]
     Indication: RETINOBLASTOMA
  2. DOXORUBICIN HCL [Suspect]
     Indication: RETINOBLASTOMA
  3. CYCLOPHOSPHAMIDE [Suspect]
     Indication: RETINOBLASTOMA

REACTIONS (2)
  - ACUTE MYELOID LEUKAEMIA [None]
  - SEPSIS [None]
